FAERS Safety Report 4714219-3 (Version None)
Quarter: 2005Q2

REPORT INFORMATION
  Report Type: 
  Country: None (occurrence: None)
  Receive Date: 20050630
  Receipt Date: 20041202
  Transmission Date: 20051028
  Serious: Yes (Other)
  Sender: FDA-Public Use
  Company Number: WAES 0412USA00406

PATIENT
  Sex: Female

DRUGS (1)
  1. HYZAAR [Suspect]
     Dosage: PO
     Route: 048

REACTIONS (1)
  - PANCREATITIS [None]
